FAERS Safety Report 14358396 (Version 2)
Quarter: 2018Q2

REPORT INFORMATION
  Report Type: Spontaneous
  Country: US (occurrence: US)
  Receive Date: 20180105
  Receipt Date: 20180404
  Transmission Date: 20180711
  Serious: No
  Sender: FDA-Public Use
  Company Number: US-SA-2017SA217834

PATIENT
  Age: 56 Year
  Sex: Female
  Weight: 77.11 kg

DRUGS (5)
  1. DUPIXENT [Suspect]
     Active Substance: DUPILUMAB
     Indication: DERMATITIS
     Route: 058
     Dates: start: 20170930, end: 20170930
  2. DUPIXENT [Suspect]
     Active Substance: DUPILUMAB
     Indication: DERMATITIS ATOPIC
     Route: 058
     Dates: start: 20170930, end: 20170930
  3. DUPIXENT [Suspect]
     Active Substance: DUPILUMAB
     Indication: DERMATITIS ATOPIC
     Route: 058
     Dates: start: 2017
  4. SYSTANE (HYPROMELLOSE 2910 (4000 MPA.S)) [Concomitant]
     Active Substance: HYPROMELLOSE 2910 (4000 MPA.S)
     Indication: DRY EYE
     Route: 065
     Dates: start: 2009
  5. DUPIXENT [Suspect]
     Active Substance: DUPILUMAB
     Indication: DERMATITIS
     Route: 058
     Dates: start: 2017

REACTIONS (9)
  - Therapeutic response decreased [Unknown]
  - Pruritus [Not Recovered/Not Resolved]
  - Cataract [Not Recovered/Not Resolved]
  - Dry eye [Not Recovered/Not Resolved]
  - Product use issue [Unknown]
  - Alopecia [Unknown]
  - Skin burning sensation [Not Recovered/Not Resolved]
  - Rash [Not Recovered/Not Resolved]
  - Erythema [Not Recovered/Not Resolved]

NARRATIVE: CASE EVENT DATE: 2017
